FAERS Safety Report 22876851 (Version 2)
Quarter: 2024Q3

REPORT INFORMATION
  Report Type: Spontaneous
  Country: US (occurrence: US)
  Receive Date: 20230829
  Receipt Date: 20240806
  Transmission Date: 20241016
  Serious: No
  Sender: RANBAXY
  Company Number: US-SUN PHARMACEUTICAL INDUSTRIES LTD-2023R1-376816

PATIENT
  Sex: Male

DRUGS (2)
  1. ODOMZO [Suspect]
     Active Substance: SONIDEGIB
     Indication: Colon cancer
     Dosage: UNK
     Route: 065
     Dates: start: 202105
  2. ODOMZO [Suspect]
     Active Substance: SONIDEGIB
     Dosage: 200 MILLIGRAM, QOD (ONCE EVERY OTHER DAY ON AN EMPTY STOMACH)
     Route: 065
     Dates: start: 202303

REACTIONS (2)
  - Muscle spasms [Unknown]
  - Incorrect dose administered [Unknown]
